FAERS Safety Report 10992994 (Version 1)
Quarter: 2015Q2

REPORT INFORMATION
  Report Type: Other
  Country: GB (occurrence: GB)
  Receive Date: 20150406
  Receipt Date: 20150406
  Transmission Date: 20150821
  Serious: Yes (Other)
  Sender: FDA-Public Use
  Company Number: GB-MYLANLABS-2015M1010004

PATIENT

DRUGS (1)
  1. CITALOPRAM [Suspect]
     Active Substance: CITALOPRAM HYDROBROMIDE
     Indication: ANXIETY
     Dosage: 20 MG, UNK
     Route: 048
     Dates: start: 20150212, end: 20150313

REACTIONS (7)
  - Chills [Unknown]
  - Vision blurred [Unknown]
  - Headache [Unknown]
  - Nausea [Unknown]
  - Feeling cold [Unknown]
  - Dysuria [Unknown]
  - Burning sensation [Unknown]
